FAERS Safety Report 12563599 (Version 2)
Quarter: 2016Q3

REPORT INFORMATION
  Report Type: Report from Study
  Country: HK (occurrence: HK)
  Receive Date: 20160715
  Receipt Date: 20160826
  Transmission Date: 20161109
  Serious: Yes (Hospitalization)
  Sender: FDA-Public Use
  Company Number: HK-BIOGEN-2016BI00261146

PATIENT
  Age: 56 Year
  Sex: Male
  Weight: 60.2 kg

DRUGS (25)
  1. ALUMINUM/MAGNESIUM HYDROXIDE AND SIMETHICONE [Concomitant]
     Indication: PROPHYLAXIS
     Route: 048
     Dates: start: 20101221
  2. ABACAVIR. [Concomitant]
     Active Substance: ABACAVIR
     Indication: ANTIVIRAL TREATMENT
     Route: 048
     Dates: start: 20110902
  3. ATORVASTATIN [Concomitant]
     Active Substance: ATORVASTATIN
     Indication: PROPHYLAXIS
     Route: 048
     Dates: start: 20121116
  4. CALCIUM CARBONATE. [Concomitant]
     Active Substance: CALCIUM CARBONATE
     Indication: MINERAL SUPPLEMENTATION
     Route: 048
     Dates: start: 20110802
  5. TRANEXAMIC ACID. [Concomitant]
     Active Substance: TRANEXAMIC ACID
     Indication: HAEMORRHAGE
     Route: 048
     Dates: start: 20090915
  6. HYPROMELLOSE [Concomitant]
     Active Substance: HYPROMELLOSES
     Indication: PROPHYLAXIS
     Dates: start: 20120703
  7. TRAMADOL. [Concomitant]
     Active Substance: TRAMADOL
     Indication: BACK PAIN
     Route: 048
     Dates: start: 20111219
  8. ELOCTATE [Suspect]
     Active Substance: (1-743)-(1638-2332)-BLOOD-COAGULATION FACTOR VIII (SYNTHETIC HUMAN) FUSION PROTEIN WITH IMMUNOGLOBULIN G1 (SYNTHETIC HUMAN FC DOMAIN FRAGMENT), (1444-6^),(1447-9^)-BIS(DISULFIDE) WITH IMMUNOGLOBULIN G1 (SYNTHETIC HUMAN FC DOMAIN FRAGMENT)
     Route: 065
     Dates: start: 20160701, end: 20160701
  9. LAMIVUDINE. [Concomitant]
     Active Substance: LAMIVUDINE
     Indication: HEPATITIS B
     Route: 048
     Dates: start: 20110902
  10. AQUEOUS CREAM [Concomitant]
     Indication: PROPHYLAXIS
     Route: 061
     Dates: start: 20111216
  11. EMULSIFYING OINTMENT [Concomitant]
     Indication: PROPHYLAXIS
     Route: 061
     Dates: start: 20111216
  12. ACYCLOVIR CREAM [Concomitant]
     Indication: ANTIVIRAL PROPHYLAXIS
     Route: 061
     Dates: start: 20130906
  13. PARACETAMOL [Concomitant]
     Active Substance: ACETAMINOPHEN
     Indication: BACK PAIN
     Route: 048
     Dates: start: 20131106
  14. LORAZEPAM. [Concomitant]
     Active Substance: LORAZEPAM
     Indication: DEPRESSION
     Route: 048
     Dates: start: 20110907
  15. MIRTAZAPINE ORODISPERSIBLE [Concomitant]
     Indication: DEPRESSION
     Route: 048
     Dates: start: 20110907
  16. MORPHINE SULPHATE [Concomitant]
     Active Substance: MORPHINE SULFATE
     Indication: BACK PAIN
     Route: 048
     Dates: start: 20090526
  17. ELOCTATE [Suspect]
     Active Substance: (1-743)-(1638-2332)-BLOOD-COAGULATION FACTOR VIII (SYNTHETIC HUMAN) FUSION PROTEIN WITH IMMUNOGLOBULIN G1 (SYNTHETIC HUMAN FC DOMAIN FRAGMENT), (1444-6^),(1447-9^)-BIS(DISULFIDE) WITH IMMUNOGLOBULIN G1 (SYNTHETIC HUMAN FC DOMAIN FRAGMENT)
     Indication: HAEMOPHILIA
     Route: 065
     Dates: start: 20120706
  18. QUETIAPINE. [Concomitant]
     Active Substance: QUETIAPINE
     Indication: DEPRESSION
     Route: 048
     Dates: start: 20111102
  19. FAKTU OINTMENT [Concomitant]
     Indication: HAEMORRHOIDS
     Route: 061
     Dates: start: 20110719
  20. CHLORHEXIDINE GLUCONATE. [Concomitant]
     Active Substance: CHLORHEXIDINE GLUCONATE
     Indication: PROPHYLAXIS
     Route: 002
     Dates: start: 20110802
  21. ZOLPIDEM TARTRATE. [Concomitant]
     Active Substance: ZOLPIDEM TARTRATE
     Indication: INSOMNIA
     Route: 048
     Dates: start: 20040224
  22. FLUOCINOLONE ACETONIDE CREAM [Concomitant]
     Indication: RASH
     Route: 061
     Dates: start: 20111121
  23. PANTOPRAZOLE SODIUM SESQUIHYDRATE [Concomitant]
     Active Substance: PANTOPRAZOLE SODIUM
     Indication: PROPHYLAXIS AGAINST GASTROINTESTINAL ULCER
     Route: 048
     Dates: start: 20111229
  24. HEPARINOID CREAM [Concomitant]
     Indication: PROPHYLAXIS
     Route: 061
     Dates: start: 20151218
  25. CHLORPHENIRAMINE MALEATE. [Concomitant]
     Active Substance: CHLORPHENIRAMINE MALEATE
     Indication: HYPERSENSITIVITY
     Route: 048
     Dates: start: 20120530

REACTIONS (1)
  - Cholangitis acute [Recovered/Resolved]

NARRATIVE: CASE EVENT DATE: 20160630
